FAERS Safety Report 19154402 (Version 1)
Quarter: 2021Q2

REPORT INFORMATION
  Report Type: Report from Study
  Country: IN (occurrence: IN)
  Receive Date: 20210419
  Receipt Date: 20210419
  Transmission Date: 20210717
  Serious: Yes (Hospitalization, Other)
  Sender: FDA-Public Use
  Company Number: IN-GLAXOSMITHKLINE-IN2021GSK086264

PATIENT
  Age: 46 Year
  Sex: Female

DRUGS (5)
  1. PHENYTOIN. [Interacting]
     Active Substance: PHENYTOIN
     Indication: SEIZURE
     Dosage: 100 MG
     Route: 042
  2. METFORMIN [Concomitant]
     Active Substance: METFORMIN HYDROCHLORIDE
     Indication: TYPE 2 DIABETES MELLITUS
     Dosage: 500 MG, BID
     Route: 048
  3. PHENYTOIN. [Interacting]
     Active Substance: PHENYTOIN
     Indication: SEIZURE
     Dosage: 200 MG
  4. RANITIDINE HYDROCHLORIDE. [Suspect]
     Active Substance: RANITIDINE HYDROCHLORIDE
     Indication: PRODUCT USED FOR UNKNOWN INDICATION
     Dosage: 50 MG, BID
     Route: 042
  5. NORMAL SALINE [Concomitant]
     Active Substance: SODIUM CHLORIDE
     Indication: PRODUCT USED FOR UNKNOWN INDICATION
     Dosage: 100 ML

REACTIONS (6)
  - Seizure [Recovered/Resolved]
  - Drug interaction [Unknown]
  - Blood pressure decreased [Recovered/Resolved]
  - Toxicity to various agents [Recovered/Resolved]
  - Vomiting [Recovered/Resolved]
  - Blood glucose abnormal [Recovered/Resolved]
